FAERS Safety Report 21757158 (Version 1)
Quarter: 2022Q4

REPORT INFORMATION
  Report Type: Spontaneous
  Country: NL (occurrence: NL)
  Receive Date: 20221220
  Receipt Date: 20221220
  Transmission Date: 20230113
  Serious: Yes (Other)
  Sender: FDA-Public Use
  Company Number: NL-AMGEN-NLDSP2022217662

PATIENT
  Age: 67 Year
  Sex: Female

DRUGS (17)
  1. PEGFILGRASTIM [Suspect]
     Active Substance: PEGFILGRASTIM
     Indication: Prophylaxis
     Dosage: UNK
     Route: 065
  2. METFORMIN [Concomitant]
     Active Substance: METFORMIN HYDROCHLORIDE
     Dosage: UNK
  3. LISINOPRIL [Concomitant]
     Active Substance: LISINOPRIL
     Dosage: UNK
  4. INSULIN NOS [Concomitant]
     Active Substance: INSULIN NOS
     Dosage: UNK
  5. UNSPECIFIED INGREDIENT [Concomitant]
     Active Substance: UNSPECIFIED INGREDIENT
     Dosage: UNK
  6. ASPIRIN [Concomitant]
     Active Substance: ASPIRIN
     Dosage: UNK
  7. ALLOPURINOL [Concomitant]
     Active Substance: ALLOPURINOL
     Indication: Prophylaxis
     Dosage: 300 MILLIGRAM, 10 DAYS
  8. RITUXIMAB [Concomitant]
     Active Substance: RITUXIMAB
     Dosage: 510 MILLIGRAM
  9. VINCRISTINE [Concomitant]
     Active Substance: VINCRISTINE
     Dosage: 1.9 MILLIGRAM
  10. DOXORUBICIN [Concomitant]
     Active Substance: DOXORUBICIN
     Dosage: 68 MILLIGRAM
  11. CYCLOPHOSPHAMIDE [Concomitant]
     Active Substance: CYCLOPHOSPHAMIDE
     Dosage: 1020 MILLIGRAM
     Route: 040
  12. PREDNISOLONE [Concomitant]
     Active Substance: PREDNISOLONE
     Dosage: 100 MILLIGRAM, ON DAYS 0-4
     Route: 048
  13. VENETOCLAX [Concomitant]
     Active Substance: VENETOCLAX
     Dosage: 800 MILLIGRAM, QD
     Route: 048
  14. POTASSIUM [Concomitant]
     Active Substance: POTASSIUM
  15. UNSPECIFIED INGREDIENT [Concomitant]
     Active Substance: UNSPECIFIED INGREDIENT
  16. MAGNESIUM [Concomitant]
     Active Substance: MAGNESIUM
  17. CALCIUM [Concomitant]
     Active Substance: CALCIUM

REACTIONS (17)
  - Febrile neutropenia [Unknown]
  - Pneumonia [Unknown]
  - Hypokalaemia [Recovered/Resolved]
  - Supraventricular extrasystoles [Unknown]
  - Proteinuria [Unknown]
  - Hypocalcaemia [Recovered/Resolved]
  - Hypophosphataemia [Recovered/Resolved]
  - Polyuria [Unknown]
  - Urine phosphorus increased [Unknown]
  - Urine magnesium increased [Unknown]
  - Hypocalciuria [Unknown]
  - Vitamin D decreased [Unknown]
  - Blood parathyroid hormone increased [Unknown]
  - Urine sodium increased [Unknown]
  - Urine chloride increased [Unknown]
  - Electrocardiogram T wave amplitude decreased [Unknown]
  - Electrocardiogram U-wave abnormality [Unknown]
